FAERS Safety Report 7470677-5 (Version None)
Quarter: 2011Q2

REPORT INFORMATION
  Report Type: 
  Country: None (occurrence: None)
  Receive Date: 20110429
  Receipt Date: 20110419
  Transmission Date: 20111010
  Serious: Yes (Hospitalization, Other)
  Sender: FDA-Public Use
  Company Number: GB-ACCORD-008824

PATIENT
  Age: 48 Year
  Sex: Male

DRUGS (4)
  1. METHYLPREDNISOLONE [Suspect]
     Indication: IMMUNOSUPPRESSION
  2. CYCLOSPORINE [Suspect]
     Indication: IMMUNOSUPPRESSION
     Dosage: 375.00-MG-1.00 TIMES PER-1.0DAYS
  3. MYCOPHENOLATE MOFETIL [Suspect]
     Indication: IMMUNOSUPPRESSION
     Dosage: 2.25-G-1.00 TIMES PER-1.0DAYS
  4. PREDNISOLONE [Suspect]
     Indication: IMMUNOSUPPRESSION
     Dosage: 0.10-MG/KG-1.00 TIMES PER-1.0DAYS

REACTIONS (2)
  - AORTIC DISSECTION [None]
  - CYTOMEGALOVIRUS INFECTION [None]
